FAERS Safety Report 10015502 (Version 1)
Quarter: 2014Q1

REPORT INFORMATION
  Report Type: Spontaneous
  Country: US (occurrence: US)
  Receive Date: 20140317
  Receipt Date: 20140317
  Transmission Date: 20141002
  Serious: Yes (Death, Other)
  Sender: FDA-Public Use
  Company Number: US-JNJFOC-20140303307

PATIENT
  Sex: 0

DRUGS (3)
  1. CLADRIBINE [Suspect]
     Indication: MANTLE CELL LYMPHOMA
     Route: 042
  2. RITUXIMAB [Suspect]
     Indication: MANTLE CELL LYMPHOMA
     Route: 042
  3. VORINOSTAT [Suspect]
     Indication: MANTLE CELL LYMPHOMA
     Route: 048

REACTIONS (9)
  - Death [Fatal]
  - Mantle cell lymphoma recurrent [Unknown]
  - Neutropenia [Unknown]
  - Thrombocytopenia [Unknown]
  - Fatigue [Unknown]
  - Decreased appetite [Unknown]
  - Dehydration [Unknown]
  - Off label use [Unknown]
  - Therapeutic response unexpected [Unknown]
